FAERS Safety Report 6370772-8 (Version None)
Quarter: 2009Q3

REPORT INFORMATION
  Report Type: 
  Country: None (occurrence: None)
  Receive Date: 20090923
  Receipt Date: 20090715
  Transmission Date: 20100115
  Serious: Yes (Hospitalization, Other)
  Sender: FDA-Public Use
  Company Number: US-ASTRAZENECA-2006UW23999

PATIENT
  Age: 15055 Day
  Sex: Female
  Weight: 102.5 kg

DRUGS (20)
  1. SEROQUEL [Suspect]
     Indication: SCHIZOPHRENIA
     Route: 048
     Dates: start: 20011015
  2. SEROQUEL [Suspect]
     Indication: BIPOLAR DISORDER
     Route: 048
     Dates: start: 20011015
  3. ABILIFY [Concomitant]
  4. GEODON [Concomitant]
  5. RISPERDAL [Concomitant]
  6. THORAZINE [Concomitant]
  7. PERPHENAZINE [Concomitant]
  8. OLANZAPINE [Concomitant]
  9. XANAX [Concomitant]
     Dates: start: 20021210
  10. TRILEPTAL [Concomitant]
     Dosage: 150 MG-300 MG
     Dates: start: 20021210
  11. PROZAC [Concomitant]
     Dosage: 20-40 MG
     Dates: start: 20021210
  12. ZYPREXA [Concomitant]
     Dosage: 10 MG-20 MG
     Dates: start: 19980101
  13. TOPAMAX [Concomitant]
     Dates: start: 20030109
  14. NEURONTIN [Concomitant]
     Dates: start: 20010301
  15. SINGULAIR [Concomitant]
     Dates: start: 20021216
  16. ALBUTEROL [Concomitant]
     Dates: start: 20021216
  17. LEVAQUIN [Concomitant]
     Dates: start: 20021216
  18. PROVIGIL [Concomitant]
     Dates: start: 20031104
  19. CELEBREX [Concomitant]
     Dates: start: 20030121
  20. NAPROXEN [Concomitant]
     Dates: start: 20040108

REACTIONS (5)
  - DIABETES MELLITUS [None]
  - DIABETIC COMA [None]
  - DIABETIC KETOACIDOSIS [None]
  - PANCREATITIS [None]
  - TYPE 2 DIABETES MELLITUS [None]
